FAERS Safety Report 14585817 (Version 1)
Quarter: 2018Q1

REPORT INFORMATION
  Report Type: Spontaneous
  Country: US (occurrence: US)
  Receive Date: 20180301
  Receipt Date: 20180301
  Transmission Date: 20180509
  Serious: No
  Sender: FDA-Public Use
  Company Number: US-PFIZER INC-2017084005

PATIENT
  Age: 6 Year
  Sex: Male
  Weight: 32.65 kg

DRUGS (1)
  1. GENOTROPIN [Suspect]
     Active Substance: SOMATROPIN
     Indication: PRADER-WILLI SYNDROME
     Dosage: 0.08 MG, ONCE A DAY (BY INJECTION)
     Dates: start: 201106

REACTIONS (7)
  - Abnormal behaviour [Unknown]
  - Hypersomnia [Unknown]
  - Obsessive-compulsive disorder [Unknown]
  - Drug dose omission [Not Recovered/Not Resolved]
  - Appetite disorder [Unknown]
  - Device issue [Unknown]
  - Dermatillomania [Unknown]

NARRATIVE: CASE EVENT DATE: 20180205
